FAERS Safety Report 5754942-5 (Version None)
Quarter: 2008Q2

REPORT INFORMATION
  Report Type: 
  Country: None (occurrence: None)
  Receive Date: 20080602
  Receipt Date: 20080526
  Transmission Date: 20081010
  Serious: Yes (Other)
  Sender: FDA-Public Use
  Company Number: CA-BRISTOL-MYERS SQUIBB COMPANY-14052260

PATIENT
  Age: 52 Year
  Sex: Male

DRUGS (2)
  1. ORENCIA [Suspect]
     Indication: RHEUMATOID ARTHRITIS
     Dosage: DURATION-Q4. 11JUN,9JUL,6+31AUG,1+26OCT,9NOV,21DEC07,15JAN,15FEB,14MAR,23MAY08. TOTAL INFU-12.
     Route: 042
     Dates: start: 20070611
  2. METHOTREXATE [Concomitant]

REACTIONS (2)
  - NASOPHARYNGITIS [None]
  - WHIPPLE'S DISEASE [None]
